FAERS Safety Report 5970331-2 (Version None)
Quarter: 2008Q4

REPORT INFORMATION
  Report Type: 
  Country: None (occurrence: None)
  Receive Date: 20081126
  Receipt Date: 20081020
  Transmission Date: 20090506
  Serious: No
  Sender: FDA-Public Use
  Company Number: US-ABBOTT-08P-163-0483062-00

PATIENT
  Sex: Female

DRUGS (2)
  1. SIMCOR [Suspect]
     Indication: DRUG USE FOR UNKNOWN INDICATION
     Dates: end: 20081011
  2. UNKNOWN [Concomitant]
     Indication: BLOOD PRESSURE
     Dosage: NOT REPORTED

REACTIONS (1)
  - LOSS OF CONSCIOUSNESS [None]
